FAERS Safety Report 6559045-8 (Version None)
Quarter: 2010Q1

REPORT INFORMATION
  Report Type: 
  Country: None (occurrence: None)
  Receive Date: 20100129
  Receipt Date: 20100118
  Transmission Date: 20100710
  Serious: Yes (Other)
  Sender: FDA-Public Use
  Company Number: US-ELI_LILLY_AND_COMPANY-US200912000582

PATIENT
  Sex: Female

DRUGS (3)
  1. FORTEO [Suspect]
     Indication: OSTEOPOROSIS
     Dosage: 20 UG, DAILY (1/D)
     Dates: start: 20090401
  2. CALCIUM [Concomitant]
     Dates: end: 20090701
  3. FUROSEMIDE [Concomitant]
     Dosage: 40 MG, UNK

REACTIONS (16)
  - ARTHRALGIA [None]
  - ASTHENIA [None]
  - ASTHMA [None]
  - CARDIAC DISORDER [None]
  - CORNEAL DEGENERATION [None]
  - DYSSTASIA [None]
  - FATIGUE [None]
  - GLAUCOMA [None]
  - INJECTION SITE HAEMATOMA [None]
  - JOINT SWELLING [None]
  - MUSCLE SPASMS [None]
  - PAIN IN EXTREMITY [None]
  - PAIN IN JAW [None]
  - SLEEP DISORDER [None]
  - SUDDEN ONSET OF SLEEP [None]
  - VISUAL IMPAIRMENT [None]
